FAERS Safety Report 9863148 (Version 2)
Quarter: 2014Q1

REPORT INFORMATION
  Report Type: Spontaneous
  Country: MY (occurrence: MY)
  Receive Date: 20140203
  Receipt Date: 20140203
  Transmission Date: 20141002
  Serious: Yes (Other)
  Sender: FDA-Public Use
  Company Number: MY-JNJFOC-20140108271

PATIENT
  Age: 59 Year
  Sex: Female
  Weight: 25.17 kg

DRUGS (15)
  1. INFLIXIMAB, RECOMBINANT [Suspect]
     Indication: RHEUMATOID ARTHRITIS
     Dosage: SIXTH INFLIXIMAB INFUSION
     Route: 042
     Dates: start: 20130115
  2. INFLIXIMAB, RECOMBINANT [Suspect]
     Indication: RHEUMATOID ARTHRITIS
     Route: 042
     Dates: start: 20130415
  3. INFLIXIMAB, RECOMBINANT [Suspect]
     Indication: RHEUMATOID ARTHRITIS
     Route: 042
     Dates: start: 20130604
  4. INFLIXIMAB, RECOMBINANT [Suspect]
     Indication: RHEUMATOID ARTHRITIS
     Route: 042
     Dates: start: 20130729
  5. INFLIXIMAB, RECOMBINANT [Suspect]
     Indication: RHEUMATOID ARTHRITIS
     Route: 042
     Dates: start: 20130923
  6. INFLIXIMAB, RECOMBINANT [Suspect]
     Indication: RHEUMATOID ARTHRITIS
     Route: 042
     Dates: start: 20131125, end: 20140113
  7. METHOTREXATE [Suspect]
     Indication: RHEUMATOID ARTHRITIS
     Dosage: PER WEEK
     Route: 065
     Dates: start: 20130612
  8. PARACETAMOL [Concomitant]
     Indication: PREMEDICATION
     Route: 065
  9. CHLORPHENIRAMINE [Concomitant]
     Indication: PREMEDICATION
     Route: 065
  10. HYDROCORTISONE [Concomitant]
     Indication: PREMEDICATION
     Route: 042
  11. FOLIC ACID [Concomitant]
     Indication: VITAMIN SUPPLEMENTATION
     Route: 042
     Dates: start: 20041222
  12. CALCIUM CARBONATE [Concomitant]
     Indication: OSTEOPOROSIS
     Route: 065
     Dates: start: 20090513
  13. ALENDRONATE [Concomitant]
     Indication: OSTEOPOROSIS
     Dosage: ^7^ MG/28000IU
     Route: 065
     Dates: start: 20090513
  14. AMLODIPINE [Concomitant]
     Indication: HYPERTENSION
     Dosage: ^10 MG^
     Route: 065
     Dates: start: 20080828, end: 20140113
  15. CELECOXIB [Concomitant]
     Indication: RHEUMATOID ARTHRITIS
     Route: 065

REACTIONS (7)
  - Subcutaneous abscess [Unknown]
  - Hypersensitivity [Recovering/Resolving]
  - Urticaria [Recovered/Resolved]
  - Pruritus [Recovered/Resolved]
  - Infusion related reaction [Unknown]
  - Herpes zoster [Unknown]
  - Anaphylactic shock [Unknown]
